FAERS Safety Report 19137586 (Version 2)
Quarter: 2021Q2

REPORT INFORMATION
  Report Type: Spontaneous
  Country: FR (occurrence: FR)
  Receive Date: 20210414
  Receipt Date: 20210523
  Transmission Date: 20210717
  Serious: Yes (Life-Threatening)
  Sender: FDA-Public Use
  Company Number: FR-TEVA-2021-FR-1899192

PATIENT
  Age: 69 Year
  Sex: Male

DRUGS (1)
  1. IRBESARTAN TEVA 150 MG, COMPRIME PELLICULE [Suspect]
     Active Substance: IRBESARTAN
     Indication: HYPERTENSION
     Dosage: 1DOSAGEFORM
     Route: 048
     Dates: start: 20190809

REACTIONS (1)
  - Hyperkalaemia [Recovered/Resolved]

NARRATIVE: CASE EVENT DATE: 202103
